FAERS Safety Report 14517924 (Version 1)
Quarter: 2018Q1

REPORT INFORMATION
  Report Type: Spontaneous
  Country: US (occurrence: US)
  Receive Date: 20180209
  Receipt Date: 20180209
  Transmission Date: 20180509
  Serious: No
  Sender: FDA-Public Use
  Company Number: None

PATIENT
  Age: 54 Year
  Sex: Male

DRUGS (2)
  1. METHOTREXATE 25MG/ML HOSPIRA [Suspect]
     Active Substance: METHOTREXATE
     Indication: ILL-DEFINED DISORDER
     Route: 058
     Dates: start: 20170201, end: 20180101
  2. SIMPONI [Suspect]
     Active Substance: GOLIMUMAB
     Indication: ILL-DEFINED DISORDER
     Dosage: 50MG QMN SQ
     Route: 058
     Dates: start: 20170119

REACTIONS (1)
  - Myocardial infarction [None]

NARRATIVE: CASE EVENT DATE: 20180101
